FAERS Safety Report 5292017-2 (Version None)
Quarter: 2007Q2

REPORT INFORMATION
  Report Type: 
  Country: None (occurrence: None)
  Receive Date: 20070410
  Receipt Date: 20070328
  Transmission Date: 20071010
  Serious: Yes (Hospitalization)
  Sender: FDA-Public Use
  Company Number: AU-NOVOPROD-262169

PATIENT
  Sex: Male

DRUGS (3)
  1. ACTRAPID HM PENFILL [Suspect]
     Indication: DIABETES MELLITUS
     Dosage: UNK IU, QD
     Route: 058
  2. PROTAPHANE PENFILL [Suspect]
     Indication: DIABETES MELLITUS
     Dosage: UNK IU, QD
     Route: 058
  3. NOVORAPID PENFILL [Suspect]
     Indication: DIABETES MELLITUS
     Dosage: UNK IU, QD
     Route: 058

REACTIONS (5)
  - BLOOD GLUCOSE FLUCTUATION [None]
  - CARDIAC DISORDER [None]
  - POSTOPERATIVE WOUND INFECTION [None]
  - VISUAL DISTURBANCE [None]
  - WEIGHT DECREASED [None]
